FAERS Safety Report 13760396 (Version 1)
Quarter: 2017Q3

REPORT INFORMATION
  Report Type: Not Available
  Country: US (occurrence: US)
  Receive Date: 20170717
  Receipt Date: 20170717
  Transmission Date: 20171127
  Serious: No
  Sender: FDA-Public Use
  Company Number: US-EXELTIS USA INC.-2023415

PATIENT
  Age: 65 Year
  Sex: Female

DRUGS (1)
  1. ECOZA [Suspect]
     Active Substance: ECONAZOLE NITRATE
     Route: 061
     Dates: start: 20170505, end: 20170530

REACTIONS (1)
  - Cellulitis [Unknown]

NARRATIVE: CASE EVENT DATE: 20170505
